FAERS Safety Report 5320876-3 (Version None)
Quarter: 2007Q2

REPORT INFORMATION
  Report Type: 
  Country: None (occurrence: None)
  Receive Date: 20070504
  Receipt Date: 20070424
  Transmission Date: 20071010
  Serious: Yes (Death, Hospitalization)
  Sender: FDA-Public Use
  Company Number: US019943

PATIENT
  Age: 73 Year
  Sex: Male

DRUGS (5)
  1. TRISENOX [Suspect]
     Indication: ACUTE PROMYELOCYTIC LEUKAEMIA
     Dosage: 9.075 MG QD INTRAVENOUS DRIP
     Route: 041
     Dates: start: 20070113, end: 20070209
  2. FAMOTIDINE [Concomitant]
  3. CANDESARTAN CILEXETIL [Concomitant]
  4. MEROPENEM TRIHYDRATE [Concomitant]
  5. LENOGRASTIM [Concomitant]

REACTIONS (10)
  - ACUTE PROMYELOCYTIC LEUKAEMIA [None]
  - CEREBRAL HAEMORRHAGE [None]
  - CHEILITIS [None]
  - CHILLS [None]
  - CONDITION AGGRAVATED [None]
  - DISSEMINATED INTRAVASCULAR COAGULATION [None]
  - HYPERHIDROSIS [None]
  - PYREXIA [None]
  - RASH [None]
  - WHITE BLOOD CELL COUNT DECREASED [None]
